FAERS Safety Report 6450650-6 (Version None)
Quarter: 2009Q4

REPORT INFORMATION
  Report Type: 
  Country: None (occurrence: None)
  Receive Date: 20091120
  Receipt Date: 20091120
  Transmission Date: 20100525
  Serious: Yes (Hospitalization)
  Sender: FDA-Public Use
  Company Number: None

PATIENT
  Age: 69 Year
  Sex: Male
  Weight: 66 kg

DRUGS (1)
  1. LISINOPRIL [Suspect]
     Indication: PAIN
     Dosage: 40MF EVERY DAY PO
     Route: 048
     Dates: start: 20050511, end: 20090814

REACTIONS (3)
  - ANGIOEDEMA [None]
  - DYSPNOEA [None]
  - STRIDOR [None]
